FAERS Safety Report 18587715 (Version 1)
Quarter: 2020Q4

REPORT INFORMATION
  Report Type: Spontaneous
  Country: US (occurrence: US)
  Receive Date: 20201207
  Receipt Date: 20201207
  Transmission Date: 20210114
  Serious: No
  Sender: FDA-Public Use
  Company Number: US-NOVOPROD-724172

PATIENT
  Age: 64 Year
  Sex: Male

DRUGS (1)
  1. NOVOLIN 70/30 [Suspect]
     Active Substance: INSULIN HUMAN
     Indication: DIABETES MELLITUS
     Dosage: 50 IU, BID ( WITH MEALS)
     Route: 058
     Dates: start: 20090101

REACTIONS (1)
  - Neuropathy peripheral [Not Recovered/Not Resolved]
